FAERS Safety Report 6959624-X (Version None)
Quarter: 2010Q3

REPORT INFORMATION
  Report Type: 
  Country: None (occurrence: None)
  Receive Date: 20100827
  Receipt Date: 20100820
  Transmission Date: 20110219
  Serious: Yes (Hospitalization, Other)
  Sender: FDA-Public Use
  Company Number: JHP201000235

PATIENT
  Age: 5 Month
  Sex: Female

DRUGS (1)
  1. ADRENALIN CHLORIDE SOLUTION (EPINEPHRINE) INJECTION, 1MG/ML [Suspect]
     Indication: WRONG DRUG ADMINISTERED
     Dosage: 2 MG, SINGLE, INTRAVENOUS
     Route: 042

REACTIONS (9)
  - ACCIDENTAL OVERDOSE [None]
  - BLOOD GLUCOSE INCREASED [None]
  - DRUG ADMINISTRATION ERROR [None]
  - FEELING COLD [None]
  - FLUID OVERLOAD [None]
  - INCORRECT ROUTE OF DRUG ADMINISTRATION [None]
  - PALLOR [None]
  - TACHYCARDIA [None]
  - WRONG DRUG ADMINISTERED [None]
